FAERS Safety Report 4814462-9 (Version None)
Quarter: 2005Q4

REPORT INFORMATION
  Report Type: 
  Country: None (occurrence: None)
  Receive Date: 20051027
  Receipt Date: 20051027
  Transmission Date: 20060501
  Serious: Yes (Hospitalization)
  Sender: FDA-Public Use
  Company Number: None

PATIENT
  Sex: Female
  Weight: 47.6277 kg

DRUGS (9)
  1. SPORANOX [Suspect]
     Dosage: 20ML QD PO   ONE DOSE ONLY
     Route: 048
     Dates: start: 20050830, end: 20050830
  2. ZITHROMAX [Concomitant]
  3. COMBIVENT [Concomitant]
  4. FOSAMAX [Concomitant]
  5. HUMALOG [Concomitant]
  6. PREDNISONE [Concomitant]
  7. ADVAIR DISKUS 100/50 [Concomitant]
  8. ULTRASE MT20 [Concomitant]
  9. AMBIEN [Concomitant]

REACTIONS (5)
  - ABASIA [None]
  - ASTHENIA [None]
  - DYSARTHRIA [None]
  - PARAESTHESIA [None]
  - SYNCOPE [None]
